FAERS Safety Report 21977218 (Version 1)
Quarter: 2023Q1

REPORT INFORMATION
  Report Type: Other
  Country: US (occurrence: None)
  Receive Date: 20230210
  Receipt Date: 20230210
  Transmission Date: 20230418
  Serious: Yes (Other)
  Sender: FDA-Public Use
  Company Number: US-ROCHE-3277349

PATIENT
  Age: 40 Year
  Sex: Female
  Weight: 120.31 kg

DRUGS (11)
  1. OCREVUS [Suspect]
     Active Substance: OCRELIZUMAB
     Indication: Relapsing-remitting multiple sclerosis
     Dosage: INDUCTION DOSE 300 MG IN 250ML 0.9% SODIUM CHLORIDE ON DAY 1 AND DAY 15 THAN MAINTENANCE DOSE 600 MG
     Route: 042
     Dates: start: 202106
  2. VALIUM [Suspect]
     Active Substance: DIAZEPAM
     Indication: Muscle spasms
     Dosage: 2 TABLETS OF 10MG EACH AS NEEDED FOR SEVERE SPASMS ;ONGOING: YES?5 MG TABLET, ONE TABLET AS NEEDED O
     Route: 048
     Dates: start: 2018
  3. AUBAGIO [Concomitant]
     Active Substance: TERIFLUNOMIDE
  4. TIZANIDINE [Concomitant]
     Active Substance: TIZANIDINE
  5. OXYBUTYNIN [Concomitant]
     Active Substance: OXYBUTYNIN
  6. CINNAMON [Concomitant]
     Active Substance: CINNAMON
  7. BACTRIM [Concomitant]
     Active Substance: SULFAMETHOXAZOLE\TRIMETHOPRIM
  8. SOLU-MEDROL [Concomitant]
     Active Substance: METHYLPREDNISOLONE SODIUM SUCCINATE
  9. ACETAMINOPHEN [Concomitant]
     Active Substance: ACETAMINOPHEN
  10. FAMOTIDINE [Concomitant]
     Active Substance: FAMOTIDINE
  11. BENADRYL [Concomitant]
     Active Substance: DIPHENHYDRAMINE HYDROCHLORIDE

REACTIONS (22)
  - Abortion spontaneous [Unknown]
  - Urinary tract infection [Recovered/Resolved]
  - Urinary retention [Not Recovered/Not Resolved]
  - Muscle spasms [Not Recovered/Not Resolved]
  - Hot flush [Not Recovered/Not Resolved]
  - Menstruation delayed [Recovered/Resolved]
  - Hypotonia [Not Recovered/Not Resolved]
  - Constipation [Not Recovered/Not Resolved]
  - Nasopharyngitis [Recovered/Resolved]
  - Dysphagia [Not Recovered/Not Resolved]
  - Bladder spasm [Recovering/Resolving]
  - Feeling cold [Not Recovered/Not Resolved]
  - Muscular weakness [Not Recovered/Not Resolved]
  - Dysstasia [Not Recovered/Not Resolved]
  - Neuropathy peripheral [Not Recovered/Not Resolved]
  - Dysgraphia [Not Recovered/Not Resolved]
  - Dry eye [Not Recovered/Not Resolved]
  - Malaise [Recovered/Resolved]
  - Infusion related reaction [Not Recovered/Not Resolved]
  - Hypoaesthesia [Not Recovered/Not Resolved]
  - Pharyngeal disorder [Unknown]
  - Maternal exposure during pregnancy [Unknown]

NARRATIVE: CASE EVENT DATE: 20210101
